FAERS Safety Report 17235123 (Version 1)
Quarter: 2019Q4

REPORT INFORMATION
  Report Type: Spontaneous
  Country: US (occurrence: US)
  Receive Date: 20191210
  Receipt Date: 20191210
  Transmission Date: 20200122
  Serious: No
  Sender: FDA-Public Use
  Company Number: None

PATIENT
  Age: 72 Year
  Sex: Male
  Weight: 136.08 kg

DRUGS (1)
  1. TENECTEPLASE (TENECTEPLASE, RECOMBINANAT 50MG/VIL INJ) [Suspect]
     Active Substance: TENECTEPLASE
     Indication: CARDIAC OPERATION
     Dosage: ?          OTHER STRENGTH:50 MG/VIL;?
     Route: 048
     Dates: start: 20180506, end: 20180506

REACTIONS (2)
  - Cerebrovascular accident [None]
  - Anaphylactic reaction [None]

NARRATIVE: CASE EVENT DATE: 20180506
